FAERS Safety Report 23594383 (Version 1)
Quarter: 2024Q1

REPORT INFORMATION
  Report Type: Spontaneous
  Country: FR (occurrence: FR)
  Receive Date: 20240305
  Receipt Date: 20240305
  Transmission Date: 20240410
  Serious: Yes (Other)
  Sender: FDA-Public Use
  Company Number: None

PATIENT
  Age: 42 Year
  Sex: Female

DRUGS (6)
  1. EPIRUBICIN [Suspect]
     Active Substance: EPIRUBICIN
     Indication: Breast cancer metastatic
     Dosage: EPIRUBICINE
     Route: 042
     Dates: start: 20200622, end: 20200824
  2. TRASTUZUMAB [Suspect]
     Active Substance: TRASTUZUMAB
     Indication: Breast cancer metastatic
     Route: 058
     Dates: start: 20201207, end: 20210927
  3. TRASTUZUMAB [Suspect]
     Active Substance: TRASTUZUMAB
     Indication: Breast cancer metastatic
     Route: 065
     Dates: start: 20230616
  4. TRASTUZUMAB [Suspect]
     Active Substance: TRASTUZUMAB
     Indication: Breast cancer metastatic
     Route: 042
     Dates: start: 20200914, end: 20201116
  5. TRASTUZUMAB [Suspect]
     Active Substance: TRASTUZUMAB
     Indication: Breast cancer metastatic
     Dosage: ((MAMMIFERE/HAMSTER/CELLULES CHO))
     Route: 042
     Dates: start: 20200622, end: 20200824
  6. PERTUZUMAB [Suspect]
     Active Substance: PERTUZUMAB
     Indication: Breast cancer metastatic
     Dosage: TIME INTERVAL: CYCLICAL
     Route: 042
     Dates: start: 20230616

REACTIONS (1)
  - Ventricular dysfunction [Recovering/Resolving]

NARRATIVE: CASE EVENT DATE: 20231228
